FAERS Safety Report 7766061-7 (Version None)
Quarter: 2011Q3

REPORT INFORMATION
  Report Type: 
  Country: None (occurrence: None)
  Receive Date: 20110921
  Receipt Date: 20110915
  Transmission Date: 20111222
  Serious: Yes (Death, Disabling, Other)
  Sender: FDA-Public Use
  Company Number: US-CELGENEUS-163-21880-11031245

PATIENT
  Sex: Male

DRUGS (9)
  1. LASIX [Concomitant]
     Route: 065
  2. ATENOLOL [Concomitant]
     Route: 065
  3. LISINOPRIL [Concomitant]
     Route: 065
  4. LIDODERM [Concomitant]
     Route: 062
  5. MIRTAZAPINE [Concomitant]
     Route: 065
  6. IMDUR [Concomitant]
     Route: 065
  7. SIMVASTATIN [Concomitant]
     Route: 065
  8. REVLIMID [Suspect]
     Dosage: 5 MILLIGRAM
     Route: 048
     Dates: start: 20110121, end: 20110318
  9. ASPIRIN [Concomitant]
     Route: 065

REACTIONS (5)
  - MYELODYSPLASTIC SYNDROME TRANSFORMATION [None]
  - ACUTE MYELOID LEUKAEMIA [None]
  - PNEUMONIA [None]
  - ANAEMIA [None]
  - RASH MACULO-PAPULAR [None]
